FAERS Safety Report 24639663 (Version 1)
Quarter: 2024Q4

REPORT INFORMATION
  Report Type: Spontaneous
  Country: US (occurrence: US)
  Receive Date: 20241119
  Receipt Date: 20241119
  Transmission Date: 20250114
  Serious: Yes (Other)
  Sender: AMGEN
  Company Number: US-AMGEN-USASP2024224184

PATIENT
  Age: 69 Year
  Sex: Male

DRUGS (1)
  1. PREDNISONE [Suspect]
     Active Substance: PREDNISONE
     Indication: Glomerulonephritis minimal lesion
     Dosage: 1 MILLIGRAM/KILOGRAM
     Route: 048

REACTIONS (5)
  - Salmonella bacteraemia [Recovered/Resolved]
  - Osteomyelitis salmonella [Recovered/Resolved]
  - Renal tubular necrosis [Unknown]
  - Urinary tract infection bacterial [Unknown]
  - Off label use [Unknown]
